FAERS Safety Report 9719832 (Version 1)
Quarter: 2013Q4

REPORT INFORMATION
  Report Type: Spontaneous
  Country: GB (occurrence: GB)
  Receive Date: 20131128
  Receipt Date: 20131128
  Transmission Date: 20140711
  Serious: Yes (Other)
  Sender: FDA-Public Use
  Company Number: GB-SA-2013SA119915

PATIENT
  Sex: Female

DRUGS (1)
  1. CLOMIFENE CITRATE [Suspect]
     Indication: PRODUCT USED FOR UNKNOWN INDICATION
     Dosage: START DATE: 30 YEARS PRIOR TO REPORT
     Route: 065

REACTIONS (2)
  - Creutzfeldt-Jakob disease [Unknown]
  - Overdose [Unknown]
